FAERS Safety Report 4538039-8 (Version None)
Quarter: 2004Q4

REPORT INFORMATION
  Report Type: 
  Country: None (occurrence: None)
  Receive Date: 20041223
  Receipt Date: 20041223
  Transmission Date: 20050328
  Serious: Yes (Hospitalization)
  Sender: FDA-Public Use
  Company Number: None

PATIENT
  Age: 54 Year
  Sex: Male
  Weight: 112.7 kg

DRUGS (7)
  1. AMITRIPTYLINE [Suspect]
     Indication: DEPRESSION
     Dosage: 300 NG PO HS
     Route: 048
     Dates: start: 19960301, end: 20040801
  2. AMITRIPTYLINE [Suspect]
     Indication: SOMNOLENCE
     Dosage: 300 NG PO HS
     Route: 048
     Dates: start: 19960301, end: 20040801
  3. QUETIAPINE FUMARATE [Concomitant]
  4. DIAZEPAM [Concomitant]
  5. BUPROPION HCL [Concomitant]
  6. OMEPRAZOLE [Concomitant]
  7. NAPROXEN [Concomitant]

REACTIONS (2)
  - DELIRIUM [None]
  - URINARY RETENTION [None]
